FAERS Safety Report 17526113 (Version 4)
Quarter: 2020Q3

REPORT INFORMATION
  Report Type: Not Available
  Country: US (occurrence: US)
  Receive Date: 20200310
  Receipt Date: 20200701
  Transmission Date: 20201102
  Serious: Yes (Hospitalization, Other)
  Sender: FDA-Public Use
  Company Number: US-NEUROCRINE BIOSCIENCES INC.-2020NBI00698

PATIENT
  Age: 66 Year
  Sex: Female

DRUGS (2)
  1. INGREZZA [Suspect]
     Active Substance: VALBENAZINE
     Indication: HUNTINGTON^S DISEASE
     Route: 048
     Dates: start: 20190826, end: 20190902
  2. INGREZZA [Suspect]
     Active Substance: VALBENAZINE
     Route: 048
     Dates: start: 20190903

REACTIONS (10)
  - Restless legs syndrome [Unknown]
  - Muscle spasms [Unknown]
  - Fatigue [Unknown]
  - Agitation [Unknown]
  - Hospitalisation [Unknown]
  - Intentional self-injury [Unknown]
  - Anxiety [Unknown]
  - Off label use [Unknown]
  - Psychiatric symptom [Unknown]
  - Insomnia [Unknown]

NARRATIVE: CASE EVENT DATE: 2019
